FAERS Safety Report 11156692 (Version 1)
Quarter: 2015Q2

REPORT INFORMATION
  Report Type: Report from Study
  Country: FR (occurrence: FR)
  Receive Date: 20150602
  Receipt Date: 20150602
  Transmission Date: 20150821
  Serious: Yes (Hospitalization, Other)
  Sender: FDA-Public Use
  Company Number: FR-GLAXOSMITHKLINE-FR2015GSK075458

PATIENT
  Age: 66 Year
  Sex: Male

DRUGS (11)
  1. GLICLAZIDE [Concomitant]
     Active Substance: GLICLAZIDE
  2. OMEGA-3-ACID ETHYL ESTERS. [Suspect]
     Active Substance: OMEGA-3-ACID ETHYL ESTERS
     Indication: ISCHAEMIC HEART DISEASE PROPHYLAXIS
     Dosage: UNK
     Dates: start: 20090303, end: 20140411
  3. LEVOTHYROX [Concomitant]
     Active Substance: LEVOTHYROXINE
  4. OMEPRAZOLE BIOGARAN [Concomitant]
  5. TAHOR [Concomitant]
     Active Substance: ATORVASTATIN CALCIUM
  6. BISOPROLOL [Concomitant]
     Active Substance: BISOPROLOL
  7. COVERSYL [Concomitant]
     Active Substance: PERINDOPRIL
  8. KARDEGIC [Concomitant]
     Active Substance: ASPIRIN LYSINE
  9. PLAVIX [Concomitant]
     Active Substance: CLOPIDOGREL BISULFATE
  10. NATISPRAY [Concomitant]
     Active Substance: NITROGLYCERIN
  11. VALSARTAN. [Concomitant]
     Active Substance: VALSARTAN

REACTIONS (1)
  - Bladder cancer [Unknown]
